FAERS Safety Report 11166188 (Version 2)
Quarter: 2015Q2

REPORT INFORMATION
  Report Type: Spontaneous
  Country: PT (occurrence: PT)
  Receive Date: 20150605
  Receipt Date: 20150605
  Transmission Date: 20150821
  Serious: Yes (Death, Other)
  Sender: FDA-Public Use
  Company Number: PHHY2015PT064119

PATIENT
  Age: 86 Year
  Sex: Female

DRUGS (11)
  1. CYTARABINE. [Suspect]
     Active Substance: CYTARABINE
     Indication: CHRONIC MYELOID LEUKAEMIA
     Route: 065
  2. AMIKACIN [Concomitant]
     Active Substance: AMIKACIN
     Indication: SKIN LESION
     Route: 065
  3. VORICONAZOL [Concomitant]
     Indication: SKIN LESION
     Route: 065
  4. IMATINIB [Suspect]
     Active Substance: IMATINIB
     Indication: CHRONIC MYELOID LEUKAEMIA
     Dosage: 400 MG, QD
     Route: 065
  5. DAUNORUBICIN [Suspect]
     Active Substance: DAUNORUBICIN
     Indication: CHRONIC MYELOID LEUKAEMIA
     Route: 065
  6. CYTARABINE. [Suspect]
     Active Substance: CYTARABINE
     Indication: CHEMOTHERAPY
  7. DAUNORUBICIN [Suspect]
     Active Substance: DAUNORUBICIN
     Indication: CHEMOTHERAPY
  8. CICLOSPORIN [Suspect]
     Active Substance: CYCLOSPORINE
     Indication: CHRONIC MYELOID LEUKAEMIA
     Route: 065
  9. MEROPENEM. [Concomitant]
     Active Substance: MEROPENEM
     Indication: SKIN LESION
     Route: 065
  10. CICLOSPORIN [Suspect]
     Active Substance: CYCLOSPORINE
     Indication: CHEMOTHERAPY
  11. VANCOMYCIN [Concomitant]
     Active Substance: VANCOMYCIN
     Indication: SKIN LESION
     Route: 065

REACTIONS (4)
  - Malignant neoplasm progression [Unknown]
  - Infection [Unknown]
  - Chronic myeloid leukaemia [Unknown]
  - Death [Fatal]
